FAERS Safety Report 9304792 (Version 1)
Quarter: 2013Q2

REPORT INFORMATION
  Report Type: Spontaneous
  Country: None (occurrence: None)
  Receive Date: 20130521
  Receipt Date: 20130521
  Transmission Date: 20140414
  Serious: Yes (Other)
  Sender: FDA-Public Use
  Company Number: EUS-2013-00275

PATIENT
  Age: 7 Year
  Sex: Male

DRUGS (3)
  1. ERWINASE (ASPARAGINASE) [Suspect]
     Indication: NON-HODGKIN^S LYMPHOMA
     Dosage: ( 2 DOSES ADMINISTERED)
  2. DEXAMETHASONE(DEXAMETHASONE)(DEXAMETHASONE) [Concomitant]
  3. ENCORTON(PREDNISONE)(PREDNISONE) [Concomitant]

REACTIONS (7)
  - Toxicity to various agents [None]
  - Drug intolerance [None]
  - Pneumonia [None]
  - Pancreatitis acute [None]
  - Thrombosis [None]
  - Osteoporosis [None]
  - Urosepsis [None]
